FAERS Safety Report 24713866 (Version 1)
Quarter: 2024Q4

REPORT INFORMATION
  Report Type: Spontaneous
  Country: US (occurrence: US)
  Receive Date: 20241209
  Receipt Date: 20241209
  Transmission Date: 20250115
  Serious: Yes (Other)
  Sender: REGENERON
  Company Number: US-REGENERON PHARMACEUTICALS, INC.-2024-068013

PATIENT
  Sex: Male

DRUGS (3)
  1. EYLEA [Suspect]
     Active Substance: AFLIBERCEPT
     Indication: Eye haemorrhage
     Dosage: UNK, FORMULATION: UNKNOWN, BOTH EYES
     Route: 031
     Dates: start: 2022
  2. EYLEA [Suspect]
     Active Substance: AFLIBERCEPT
     Indication: Diabetes mellitus
     Dosage: UNK, MONTHLY, FORMULATION: UNKNOWN, BOTH EYES
     Route: 031
  3. EYLEA [Suspect]
     Active Substance: AFLIBERCEPT
     Dosage: UNK, EVERY 6 WEEKS, BOTH EYES, FORMULATION: UNKNOWN
     Route: 031

REACTIONS (2)
  - Cerebrovascular accident [Unknown]
  - Off label use [Not Recovered/Not Resolved]

NARRATIVE: CASE EVENT DATE: 20220101
